FAERS Safety Report 11714410 (Version 2)
Quarter: 2015Q4

REPORT INFORMATION
  Report Type: Spontaneous
  Country: US (occurrence: US)
  Receive Date: 20151109
  Receipt Date: 20151218
  Transmission Date: 20160304
  Serious: Yes (Hospitalization)
  Sender: FDA-Public Use
  Company Number: US-AUROBINDO-AUR-APL-2015-10141

PATIENT

DRUGS (1)
  1. SERTRALINE [Suspect]
     Active Substance: SERTRALINE HYDROCHLORIDE
     Indication: PRODUCT USED FOR UNKNOWN INDICATION
     Route: 065

REACTIONS (8)
  - Psychogenic seizure [Unknown]
  - Schizophreniform disorder [Unknown]
  - Affect lability [Unknown]
  - Feeling abnormal [Unknown]
  - Panic attack [Unknown]
  - Product substitution issue [Unknown]
  - Dysarthria [Unknown]
  - Homicidal ideation [Unknown]
